FAERS Safety Report 7828256-3 (Version None)
Quarter: 2011Q4

REPORT INFORMATION
  Report Type: 
  Country: None (occurrence: None)
  Receive Date: 20111020
  Receipt Date: 20111012
  Transmission Date: 20120403
  Serious: Yes (Hospitalization, Other)
  Sender: FDA-Public Use
  Company Number: US-B.I. PHARMACEUTICALS,INC./RIDGEFIELD-2011-BP-22907BP

PATIENT
  Sex: Female

DRUGS (10)
  1. SYNTHROID [Concomitant]
     Dosage: 88 MCG
     Route: 048
  2. CARBIDOPA + LEVODOPA [Concomitant]
     Route: 048
  3. OMEPRAZOLE [Concomitant]
     Dosage: 40 MG
     Route: 048
  4. POTASSIUM CHLORIDE [Concomitant]
     Dosage: 10 MEQ
     Route: 048
  5. DIGOXIN [Concomitant]
     Dosage: 0.125 MG
     Route: 048
  6. AMANTADINE HCL [Concomitant]
     Dosage: 200 MG
     Route: 048
  7. LASIX [Concomitant]
     Dosage: 20 MG
     Route: 048
  8. PRAMIPEXOLE DIHYDROCHLORIDE [Concomitant]
     Route: 048
  9. PRADAXA [Suspect]
     Indication: ATRIAL FIBRILLATION
     Dosage: 300 MG
     Route: 048
     Dates: start: 20110912
  10. MIDODRINE HYDROCHLORIDE [Concomitant]
     Dosage: 5 MG
     Route: 048

REACTIONS (5)
  - FALL [None]
  - LIMB INJURY [None]
  - TRANSIENT ISCHAEMIC ATTACK [None]
  - CONTUSION [None]
  - BACK PAIN [None]
